FAERS Safety Report 17398544 (Version 1)
Quarter: 2020Q1

REPORT INFORMATION
  Report Type: Spontaneous
  Country: JP (occurrence: JP)
  Receive Date: 20200210
  Receipt Date: 20200210
  Transmission Date: 20200409
  Serious: Yes (Death)
  Sender: FDA-Public Use
  Company Number: JP-SYNEX-T202000504

PATIENT

DRUGS (2)
  1. INOFLO [Suspect]
     Active Substance: NITRIC OXIDE
     Indication: CARDIAC OPERATION
  2. INOFLO [Suspect]
     Active Substance: NITRIC OXIDE
     Indication: PULMONARY HYPERTENSION
     Dosage: UNK, PER INHALATION
     Route: 055
     Dates: start: 20200128, end: 20200129

REACTIONS (1)
  - Pulmonary hypertensive crisis [Fatal]

NARRATIVE: CASE EVENT DATE: 20200129
